FAERS Safety Report 16327505 (Version 2)
Quarter: 2019Q2

REPORT INFORMATION
  Report Type: Report from Study
  Country: CA (occurrence: CA)
  Receive Date: 20190517
  Receipt Date: 20190524
  Transmission Date: 20190711
  Serious: Yes (Death, Hospitalization)
  Sender: FDA-Public Use
  Company Number: CA-HLSUS-2019-CA-000541

PATIENT
  Age: 72 Year
  Sex: Male
  Weight: 90 kg

DRUGS (1)
  1. CLOZARIL [Suspect]
     Active Substance: CLOZAPINE
     Dosage: 250 MG AT BEDTIME
     Route: 048
     Dates: start: 19990427

REACTIONS (3)
  - Respiratory failure [Fatal]
  - Chronic obstructive pulmonary disease [Fatal]
  - Pneumonia [Fatal]

NARRATIVE: CASE EVENT DATE: 20190508
